FAERS Safety Report 18280032 (Version 1)
Quarter: 2020Q3

REPORT INFORMATION
  Report Type: Spontaneous
  Country: US (occurrence: US)
  Receive Date: 20200918
  Receipt Date: 20200918
  Transmission Date: 20201103
  Serious: No
  Sender: FDA-Public Use
  Company Number: US-STRIDES ARCOLAB LIMITED-2020SP004623

PATIENT

DRUGS (2)
  1. BENZONATATE. [Suspect]
     Active Substance: BENZONATATE
     Indication: NASOPHARYNGITIS
     Dosage: 5 DOSAGE FORM (CAPSULES)
     Route: 065
  2. BENZONATATE. [Suspect]
     Active Substance: BENZONATATE
     Indication: COUGH

REACTIONS (1)
  - Drug ineffective [Unknown]
